FAERS Safety Report 5096543-0 (Version None)
Quarter: 2006Q3

REPORT INFORMATION
  Report Type: 
  Country: None (occurrence: None)
  Receive Date: 20060830
  Receipt Date: 20060817
  Transmission Date: 20061208
  Serious: Yes (Death, Life-Threatening)
  Sender: FDA-Public Use
  Company Number: 2006052908

PATIENT
  Age: 59 Year
  Sex: Female
  Weight: 72 kg

DRUGS (7)
  1. DOSTINEX [Suspect]
     Indication: PROLACTINOMA
     Dosage: 0.5 MG (0.5 MG, 1 IN 1 D); ORAL
     Route: 048
     Dates: start: 20051201, end: 20060218
  2. TROSPIUM CHLORIDE [Concomitant]
  3. RAMIPRIL [Concomitant]
  4. TAHOR (ATORVASTATIN) [Concomitant]
  5. CALCIUM ^SANDOZ^ (CALCIUM GLUBIONATE) [Concomitant]
  6. DEDROGYL (CALCIFEDIOL) [Concomitant]
  7. HEXAQUINE (NIAOULI OIL, QUININE BENZOATE, THIAMINE HYDROCHLORIDE) [Concomitant]

REACTIONS (10)
  - COLITIS ULCERATIVE [None]
  - COLONIC OBSTRUCTION [None]
  - DRUG TOLERANCE DECREASED [None]
  - FAECALOMA [None]
  - HYPOTENSION [None]
  - INFLAMMATION [None]
  - INTESTINAL ISCHAEMIA [None]
  - IRRITABILITY [None]
  - NECROTISING COLITIS [None]
  - SEPTIC SHOCK [None]
